FAERS Safety Report 15205733 (Version 2)
Quarter: 2018Q4

REPORT INFORMATION
  Report Type: Spontaneous
  Country: PT (occurrence: PT)
  Receive Date: 20180727
  Receipt Date: 20180801
  Transmission Date: 20190204
  Serious: Yes (Life-Threatening, Hospitalization, Other)
  Sender: FDA-Public Use
  Company Number: PT-BRISTOL-MYERS SQUIBB COMPANY-BMS-2018-069490

PATIENT
  Age: 51 Year
  Sex: Female
  Weight: 72 kg

DRUGS (8)
  1. FUROSEMIDE. [Suspect]
     Active Substance: FUROSEMIDE
     Indication: WEIGHT DECREASED
     Dosage: 30 MG, BID
     Route: 048
     Dates: start: 201706, end: 201807
  2. CHLORDIAZEPOXIDE. [Suspect]
     Active Substance: CHLORDIAZEPOXIDE
     Indication: WEIGHT DECREASED
     Dosage: 10 MG, BID
     Route: 048
     Dates: start: 201706, end: 201807
  3. TRI-GYNERA [Suspect]
     Active Substance: ETHINYL ESTRADIOL\GESTODENE
     Indication: CONTRACEPTION
     Dosage: UNK
     Route: 048
     Dates: start: 2002, end: 201807
  4. METFORMIN HYDROCHLORIDE. [Suspect]
     Active Substance: METFORMIN HYDROCHLORIDE
     Indication: WEIGHT DECREASED
     Dosage: 230 MG, BID
     Route: 048
     Dates: start: 201706, end: 201807
  5. BUPROPION. [Suspect]
     Active Substance: BUPROPION
     Indication: WEIGHT DECREASED
     Dosage: 120 MG, BID
     Route: 048
     Dates: start: 201706, end: 201807
  6. LEVOTHYROXINE SODIUM. [Concomitant]
     Active Substance: LEVOTHYROXINE SODIUM
     Indication: HYPOTHYROIDISM
     Route: 048
  7. TOPIRAMATE. [Suspect]
     Active Substance: TOPIRAMATE
     Indication: WEIGHT DECREASED
     Dosage: 35 MG, BID
     Route: 048
     Dates: start: 201706, end: 201807
  8. CASCARA [Suspect]
     Active Substance: RHAMNUS PURSHIANA BARK EXTRACT
     Indication: WEIGHT DECREASED
     Dosage: 60 MG, BID
     Route: 048
     Dates: start: 201706, end: 201807

REACTIONS (3)
  - Cerebral venous thrombosis [Recovering/Resolving]
  - Product use in unapproved indication [Unknown]
  - Headache [Recovering/Resolving]

NARRATIVE: CASE EVENT DATE: 20180619
